FAERS Safety Report 20190936 (Version 2)
Quarter: 2021Q4

REPORT INFORMATION
  Report Type: Spontaneous
  Country: AR (occurrence: AR)
  Receive Date: 20211216
  Receipt Date: 20211226
  Transmission Date: 20220303
  Serious: Yes (Hospitalization, Other)
  Sender: FDA-Public Use
  Company Number: AR-SA-2021SA415878

PATIENT
  Age: 34 Year
  Sex: Female

DRUGS (2)
  1. ZOLPIDEM TARTRATE [Suspect]
     Active Substance: ZOLPIDEM TARTRATE
     Indication: Pruritus
     Dosage: UNK
  2. ZOLPIDEM TARTRATE [Suspect]
     Active Substance: ZOLPIDEM TARTRATE
     Dosage: INCREASED TO 20 MG, QD

REACTIONS (10)
  - Drug reaction with eosinophilia and systemic symptoms [Unknown]
  - Pyrexia [Unknown]
  - Dermatitis exfoliative generalised [Unknown]
  - Tremor [Unknown]
  - Eosinophilia [Unknown]
  - Serositis [Unknown]
  - Hepatic enzyme increased [Unknown]
  - Self-medication [Unknown]
  - Intentional product use issue [Unknown]
  - Off label use [Unknown]
